FAERS Safety Report 22306287 (Version 1)
Quarter: 2023Q2

REPORT INFORMATION
  Report Type: Spontaneous
  Country: RU (occurrence: None)
  Receive Date: 20230511
  Receipt Date: 20230511
  Transmission Date: 20230721
  Serious: Yes (Other)
  Sender: FDA-Public Use
  Company Number: RU-ROCHE-3344806

PATIENT
  Age: 57 Year
  Sex: Female

DRUGS (1)
  1. POLIVY [Suspect]
     Active Substance: POLATUZUMAB VEDOTIN-PIIQ
     Indication: Diffuse large B-cell lymphoma
     Route: 065

REACTIONS (5)
  - Ascites [Unknown]
  - Abdominal neoplasm [Unknown]
  - Hypoaesthesia [Unknown]
  - Paraesthesia [Unknown]
  - Hypoaesthesia [Unknown]
